FAERS Safety Report 10013982 (Version 1)
Quarter: 2014Q1

REPORT INFORMATION
  Report Type: Spontaneous
  Country: AU (occurrence: AU)
  Receive Date: 20140316
  Receipt Date: 20140316
  Transmission Date: 20141002
  Serious: Yes (Other)
  Sender: FDA-Public Use
  Company Number: AU-JNJFOC-20140307547

PATIENT
  Age: 72 Year
  Sex: Female

DRUGS (3)
  1. XARELTO [Suspect]
     Indication: PRODUCT USED FOR UNKNOWN INDICATION
     Route: 048
     Dates: start: 201309
  2. PREMARIN [Concomitant]
     Route: 065
  3. SOTALOL [Concomitant]
     Route: 065

REACTIONS (4)
  - Neuropathy peripheral [Unknown]
  - Urticaria [Unknown]
  - Pruritus [Unknown]
  - Scar [Unknown]
